FAERS Safety Report 14655598 (Version 1)
Quarter: 2018Q1

REPORT INFORMATION
  Report Type: Report from Study
  Country: JP (occurrence: JP)
  Receive Date: 20180319
  Receipt Date: 20180319
  Transmission Date: 20180509
  Serious: Yes (Other)
  Sender: FDA-Public Use
  Company Number: JP-TEVA-802418ROM

PATIENT
  Age: 53 Year
  Sex: Male

DRUGS (6)
  1. GABALON [Concomitant]
     Active Substance: BACLOFEN
     Dosage: ONGOING
     Route: 065
  2. TEPRENONE [Concomitant]
     Active Substance: TEPRENONE
     Dosage: ONGOING
     Route: 065
  3. AMLODIPINE [Concomitant]
     Active Substance: AMLODIPINE BESYLATE
     Dosage: ONGOING
  4. VESICARE [Concomitant]
     Active Substance: SOLIFENACIN SUCCINATE
     Dosage: ONGOING
  5. GLATIRAMER ACETATE. [Suspect]
     Active Substance: GLATIRAMER ACETATE
     Indication: RELAPSING-REMITTING MULTIPLE SCLEROSIS
     Dosage: 20 MILLIGRAM/MILLILITERS DAILY; ONGOING
     Route: 058
     Dates: start: 20160530
  6. AMITIZA [Concomitant]
     Active Substance: LUBIPROSTONE
     Dosage: ONGOING
     Dates: start: 20160808

REACTIONS (6)
  - Diabetes mellitus [Recovered/Resolved]
  - Multiple sclerosis relapse [Recovering/Resolving]
  - Injection site pain [Recovered/Resolved]
  - Injection site erythema [Recovered/Resolved]
  - Injection site swelling [Recovered/Resolved]
  - Injection site induration [Not Recovered/Not Resolved]

NARRATIVE: CASE EVENT DATE: 20160530
